FAERS Safety Report 25501548 (Version 1)
Quarter: 2025Q3

REPORT INFORMATION
  Report Type: Report from Study
  Country: KR (occurrence: KR)
  Receive Date: 20250701
  Receipt Date: 20250701
  Transmission Date: 20251021
  Serious: Yes (Hospitalization, Other)
  Sender: JOHNSON AND JOHNSON
  Company Number: KR-JNJFOC-20250631358

PATIENT
  Age: 63 Year
  Sex: Female
  Weight: 52 kg

DRUGS (12)
  1. LAZERTINIB [Suspect]
     Active Substance: LAZERTINIB
     Indication: Non-small cell lung cancer
     Dosage: REGIMEN 1
     Route: 048
     Dates: start: 20230717, end: 20230905
  2. LAZERTINIB [Suspect]
     Active Substance: LAZERTINIB
     Dosage: REGIMEN 2
     Route: 048
     Dates: start: 20230906, end: 20230912
  3. LAZERTINIB [Suspect]
     Active Substance: LAZERTINIB
     Dosage: REGIMEN 3
     Route: 048
     Dates: start: 20230925, end: 20231115
  4. ADENINE HYDROCHLORIDE;CARNITINE OROTATE;CYANOCOBALAMIN;LIVER;PYRIDOXIN [Concomitant]
     Indication: Product used for unknown indication
     Dates: start: 20230906
  5. URSODIOL [Concomitant]
     Active Substance: URSODIOL
     Indication: Antiviral prophylaxis
     Route: 048
     Dates: start: 20230913, end: 20231121
  6. MINOCYCLINE HYDROCHLORIDE [Concomitant]
     Active Substance: MINOCYCLINE HYDROCHLORIDE
     Indication: Rash
     Route: 048
     Dates: start: 20221012, end: 20221108
  7. MINOCYCLINE HYDROCHLORIDE [Concomitant]
     Active Substance: MINOCYCLINE HYDROCHLORIDE
     Route: 048
     Dates: start: 20221109, end: 20230315
  8. MINOCYCLINE HYDROCHLORIDE [Concomitant]
     Active Substance: MINOCYCLINE HYDROCHLORIDE
     Route: 048
     Dates: start: 20230322, end: 20230517
  9. MINOCYCLINE HYDROCHLORIDE [Concomitant]
     Active Substance: MINOCYCLINE HYDROCHLORIDE
     Route: 048
     Dates: start: 20230717, end: 20230912
  10. AFATINIB [Concomitant]
     Active Substance: AFATINIB
     Indication: Non-small cell lung cancer
     Route: 048
     Dates: start: 20220921, end: 20221228
  11. AFATINIB [Concomitant]
     Active Substance: AFATINIB
     Route: 048
     Dates: start: 20221229, end: 20230315
  12. AFATINIB [Concomitant]
     Active Substance: AFATINIB
     Route: 048
     Dates: start: 20230322, end: 20230622

REACTIONS (2)
  - Aspartate aminotransferase increased [Recovered/Resolved]
  - Drug-induced liver injury [Unknown]

NARRATIVE: CASE EVENT DATE: 20230913
